FAERS Safety Report 9140008 (Version 1)
Quarter: 2013Q1

REPORT INFORMATION
  Report Type: Spontaneous
  Country: US (occurrence: US)
  Receive Date: 20130305
  Receipt Date: 20130305
  Transmission Date: 20140127
  Serious: Yes (Hospitalization)
  Sender: FDA-Public Use
  Company Number: US-BAYER-2013-027652

PATIENT
  Age: 40 Year
  Sex: Female

DRUGS (5)
  1. YAZ [Suspect]
     Indication: CONTRACEPTION
  2. VALTREX [Concomitant]
  3. DENAVIR [Concomitant]
  4. AMOXICILLIN [Concomitant]
  5. ALPRAZOLAM [Concomitant]
     Indication: SLEEP DISORDER

REACTIONS (1)
  - Pulmonary embolism [Recovered/Resolved]
